FAERS Safety Report 17558634 (Version 1)
Quarter: 2020Q1

REPORT INFORMATION
  Report Type: Report from Study
  Country: US (occurrence: US)
  Receive Date: 20200319
  Receipt Date: 20200319
  Transmission Date: 20200409
  Serious: Yes (Hospitalization)
  Sender: FDA-Public Use
  Company Number: US-EXELIXIS-XL18419019767

PATIENT
  Age: 60 Year
  Sex: Male
  Weight: 77.7 kg

DRUGS (12)
  1. CEPHALEXIN. [Concomitant]
     Active Substance: CEPHALEXIN
  2. NYSTATIN. [Concomitant]
     Active Substance: NYSTATIN
  3. PROCHLORPERAZINE MALEATE. [Concomitant]
     Active Substance: PROCHLORPERAZINE MALEATE
  4. METHADONE HCL [Concomitant]
     Active Substance: METHADONE HYDROCHLORIDE
  5. XL184 [Suspect]
     Active Substance: CABOZANTINIB
     Indication: ADENOCARCINOMA OF COLON
     Dosage: 40 MG, QD
     Route: 048
     Dates: start: 20190313, end: 20190325
  6. GABAPENTIN. [Concomitant]
     Active Substance: GABAPENTIN
  7. OMEPRAZOLE. [Concomitant]
     Active Substance: OMEPRAZOLE
  8. UREA. [Concomitant]
     Active Substance: UREA
  9. XL184 [Suspect]
     Active Substance: CABOZANTINIB
     Dosage: 40 MG, QD
     Route: 048
     Dates: start: 20190327
  10. ATEZOLIZUMAB. [Suspect]
     Active Substance: ATEZOLIZUMAB
     Indication: ADENOCARCINOMA OF COLON
     Dosage: 1200 MG, Q3WEEKS
     Route: 042
     Dates: start: 20190313
  11. DOCUSATE SODIUM. [Concomitant]
     Active Substance: DOCUSATE SODIUM
  12. POTASSIUM CHLORIDE. [Concomitant]
     Active Substance: POTASSIUM CHLORIDE

REACTIONS (1)
  - Anal abscess [Recovered/Resolved]

NARRATIVE: CASE EVENT DATE: 20190325
